FAERS Safety Report 4714617-8 (Version None)
Quarter: 2005Q3

REPORT INFORMATION
  Report Type: 
  Country: None (occurrence: None)
  Receive Date: 20050714
  Receipt Date: 20050714
  Transmission Date: 20060218
  Serious: No
  Sender: FDA-Public Use
  Company Number: None

PATIENT
  Age: 51 Year
  Sex: Male
  Weight: 92.9874 kg

DRUGS (3)
  1. CELEBREX [Suspect]
     Indication: PAIN IN EXTREMITY
     Dosage: 200 MG ORAL
     Route: 048
     Dates: start: 20050628, end: 20050707
  2. PREDNISONE [Concomitant]
  3. CORTICO STEROID CREAM [Concomitant]

REACTIONS (11)
  - DISCOMFORT [None]
  - DIZZINESS [None]
  - ERYTHEMA [None]
  - FEELING ABNORMAL [None]
  - FEELING HOT [None]
  - LIVEDO RETICULARIS [None]
  - MEDICATION ERROR [None]
  - PRURITUS [None]
  - SWELLING [None]
  - SWELLING FACE [None]
  - URTICARIA [None]
